FAERS Safety Report 18509724 (Version 2)
Quarter: 2020Q4

REPORT INFORMATION
  Report Type: Spontaneous
  Country: JP (occurrence: JP)
  Receive Date: 20201117
  Receipt Date: 20201216
  Transmission Date: 20210114
  Serious: Yes (Death, Other)
  Sender: FDA-Public Use
  Company Number: JP-ALKEM LABORATORIES LIMITED-JP-ALKEM-2020-07868

PATIENT
  Age: 10 Year
  Sex: Male
  Weight: 73.02 kg

DRUGS (3)
  1. PIMOZIDE. [Suspect]
     Active Substance: PIMOZIDE
     Indication: AUTISM SPECTRUM DISORDER
     Dosage: 3 MILLIGRAM
     Route: 048
  2. SERTRALINE [Suspect]
     Active Substance: SERTRALINE HYDROCHLORIDE
     Indication: AUTISM SPECTRUM DISORDER
     Dosage: 25 MILLIGRAM
     Route: 048
  3. ARIPIPRAZOLE. [Suspect]
     Active Substance: ARIPIPRAZOLE
     Indication: AUTISM SPECTRUM DISORDER
     Dosage: 3 MILLIGRAM
     Route: 048

REACTIONS (3)
  - Cardio-respiratory arrest [Fatal]
  - Arrhythmia [Fatal]
  - Drug interaction [Unknown]
